FAERS Safety Report 25583237 (Version 1)
Quarter: 2025Q3

REPORT INFORMATION
  Report Type: Spontaneous
  Country: EU (occurrence: EU)
  Receive Date: 20250721
  Receipt Date: 20250721
  Transmission Date: 20251021
  Serious: Yes (Other)
  Sender: DENTSPLY
  Company Number: EU-DENTSPLY-2025SCDP000184

PATIENT

DRUGS (2)
  1. ORAQIX [Suspect]
     Active Substance: LIDOCAINE\PRILOCAINE
     Indication: Dental cleaning
     Route: 065
     Dates: start: 20250703, end: 20250703
  2. LEVOTHYROXINE SODIUM [Concomitant]
     Active Substance: LEVOTHYROXINE SODIUM
     Indication: Hypothyroidism

REACTIONS (2)
  - Drug ineffective [Unknown]
  - Product colour issue [Unknown]

NARRATIVE: CASE EVENT DATE: 20250703
